FAERS Safety Report 9689656 (Version 1)
Quarter: 2013Q4

REPORT INFORMATION
  Report Type: Spontaneous
  Country: US (occurrence: US)
  Receive Date: 20131115
  Receipt Date: 20131115
  Transmission Date: 20140711
  Serious: No
  Sender: FDA-Public Use
  Company Number: US-BIOGENIDEC-2013BI103357

PATIENT
  Age: 57 Year
  Sex: Female

DRUGS (6)
  1. AVONEX [Suspect]
     Indication: MULTIPLE SCLEROSIS
     Route: 030
     Dates: start: 19961201, end: 2003
  2. AVONEX [Suspect]
     Indication: MULTIPLE SCLEROSIS
     Route: 030
     Dates: start: 2003, end: 20130627
  3. AMPYRA [Concomitant]
     Indication: GAIT DISTURBANCE
     Route: 048
  4. AMPYRA [Concomitant]
     Indication: GAIT DISTURBANCE
     Route: 048
  5. TECFIDERA [Concomitant]
     Indication: MULTIPLE SCLEROSIS
     Dates: start: 201306
  6. TECFIDERA [Concomitant]
     Indication: MULTIPLE SCLEROSIS
     Dates: start: 201306

REACTIONS (3)
  - Abasia [Recovered/Resolved]
  - Drug ineffective [Recovered/Resolved]
  - Musculoskeletal disorder [Not Recovered/Not Resolved]
